FAERS Safety Report 24694613 (Version 1)
Quarter: 2024Q4

REPORT INFORMATION
  Report Type: Spontaneous
  Country: CN (occurrence: CN)
  Receive Date: 20241204
  Receipt Date: 20241204
  Transmission Date: 20250115
  Serious: Yes (Hospitalization)
  Sender: JOHNSON AND JOHNSON
  Company Number: CN-BAYER-2024A169345

PATIENT
  Age: 79 Year
  Sex: Male
  Weight: 70 kg

DRUGS (2)
  1. XARELTO [Suspect]
     Active Substance: RIVAROXABAN
     Indication: Atrial fibrillation
     Dosage: 10 MG, QD
     Route: 048
     Dates: start: 20241122, end: 20241127
  2. XARELTO [Suspect]
     Active Substance: RIVAROXABAN
     Indication: Heart rate decreased

REACTIONS (3)
  - Vascular pseudoaneurysm [Recovered/Resolved]
  - Prescribed underdose [Unknown]
  - Underdose [Unknown]

NARRATIVE: CASE EVENT DATE: 20241122
